FAERS Safety Report 19797679 (Version 1)
Quarter: 2021Q3

REPORT INFORMATION
  Report Type: Spontaneous
  Country: US (occurrence: US)
  Receive Date: 20210906
  Receipt Date: 20210906
  Transmission Date: 20211014
  Serious: Yes (Other)
  Sender: FDA-Public Use
  Company Number: None

PATIENT
  Age: 55 Year
  Sex: Female
  Weight: 45.9 kg

DRUGS (4)
  1. CENTRUM MULTI?VITAMIN [Concomitant]
  2. AMLODIPINE/BENAZEPRIL [Concomitant]
     Active Substance: AMLODIPINE BESYLATE\BENAZEPRIL HYDROCHLORIDE
  3. SALMON OIL [Concomitant]
     Active Substance: FISH OIL
  4. ATORVASTATIN [Suspect]
     Active Substance: ATORVASTATIN
     Indication: BLOOD CHOLESTEROL INCREASED

REACTIONS (10)
  - Chromaturia [None]
  - Pruritus [None]
  - Heart rate irregular [None]
  - Pyrexia [None]
  - Abdominal pain upper [None]
  - Dizziness [None]
  - Feeling cold [None]
  - Feeling hot [None]
  - Vomiting [None]
  - Flatulence [None]

NARRATIVE: CASE EVENT DATE: 20210901
